FAERS Safety Report 4631655-4 (Version None)
Quarter: 2005Q2

REPORT INFORMATION
  Report Type: 
  Country: None (occurrence: None)
  Receive Date: 20050407
  Receipt Date: 20050321
  Transmission Date: 20051028
  Serious: Yes (Other)
  Sender: FDA-Public Use
  Company Number: 213487

PATIENT
  Age: 62 Year
  Sex: Male
  Weight: 89.3 kg

DRUGS (6)
  1. BEVACIZUMAB  CODE BROKEN [Suspect]
     Indication: COLORECTAL CANCER METASTATIC
     Dosage: 675 MG, Q3W, INTRAVENOUS
     Route: 042
     Dates: start: 20041220, end: 20050221
  2. CAPECITABINE (CAPECITABINE) [Suspect]
     Indication: COLORECTAL CANCER METASTATIC
     Dosage: 2150 MG, BID, ORAL
     Route: 048
     Dates: start: 20041220
  3. OXALIPLATIN(OXALIPLATIN) [Suspect]
     Indication: COLORECTAL CANCER METASTATIC
     Dosage: 270 MG, Q3W, INTRAVENOUS
     Route: 042
     Dates: start: 20041220
  4. ATENOLOL [Concomitant]
  5. PRAVASTATIN (PRAVASTATIN SODIUM) [Concomitant]
  6. ASPIRIN [Concomitant]

REACTIONS (1)
  - CHEST X-RAY ABNORMAL [None]
